FAERS Safety Report 23668059 (Version 4)
Quarter: 2025Q4

REPORT INFORMATION
  Report Type: Spontaneous
  Country: EU (occurrence: EU)
  Receive Date: 20240325
  Receipt Date: 20251112
  Transmission Date: 20260118
  Serious: Yes (Life-Threatening, Hospitalization, Other)
  Sender: SANDOZ
  Company Number: EU-MACLEODS PHARMACEUTICALS US LTD-MAC2021029748

PATIENT
  Age: 53 Year
  Sex: Female

DRUGS (21)
  1. AMLODIPINE [Suspect]
     Active Substance: AMLODIPINE BESYLATE
     Indication: Product used for unknown indication
     Dosage: 5 MG, QD (5 MILLIGRAM, QD, 1X5 MG)
     Route: 065
  2. BISOPROLOL [Suspect]
     Active Substance: BISOPROLOL
     Indication: Product used for unknown indication
     Dosage: 5 MG (5 MILLIGRAM, QD, 1X5 MG)
     Route: 065
  3. CANDESARTAN [Suspect]
     Active Substance: CANDESARTAN
     Indication: Pain
     Dosage: 16 MG (16 MILLIGRAM, QD, 1X16 MG)
     Route: 065
  4. CELECOXIB [Suspect]
     Active Substance: CELECOXIB
     Indication: Product used for unknown indication
     Dosage: 100 MG, BID
     Route: 048
  5. DEXAMETHASONE [Suspect]
     Active Substance: DEXAMETHASONE
     Indication: Infiltration anaesthesia
     Dosage: UNK
     Route: 050
  6. LEVOTHYROXINE [Suspect]
     Active Substance: LEVOTHYROXINE
     Indication: Product used for unknown indication
     Dosage: 125 UG, QD (125 MICROGRAM, QD)
     Route: 065
  7. BUPIVACAINE HYDROCHLORIDE [Suspect]
     Active Substance: BUPIVACAINE HYDROCHLORIDE
     Dosage: UNK (ON JANUARY 15 AND 17)
     Route: 008
  8. BUPIVACAINE HYDROCHLORIDE [Suspect]
     Active Substance: BUPIVACAINE HYDROCHLORIDE
     Dosage: UNK (ON JANUARY 15 AND 17)
     Route: 008
  9. BUPIVACAINE HYDROCHLORIDE [Suspect]
     Active Substance: BUPIVACAINE HYDROCHLORIDE
     Dosage: UNK (ON JANUARY 21)
     Route: 037
  10. BUPIVACAINE HYDROCHLORIDE [Suspect]
     Active Substance: BUPIVACAINE HYDROCHLORIDE
     Dosage: UNK (ON JANUARY 21)
     Route: 037
  11. BUPIVACAINE HYDROCHLORIDE [Suspect]
     Active Substance: BUPIVACAINE HYDROCHLORIDE
     Indication: Sacroiliac joint dysfunction
     Dosage: UNK (ON JANUARY 14 AND 18)
     Route: 050
  12. BUPIVACAINE HYDROCHLORIDE [Suspect]
     Active Substance: BUPIVACAINE HYDROCHLORIDE
     Dosage: UNK (ON JANUARY 14 AND 18)
     Route: 050
  13. METAMIZOLE [Suspect]
     Active Substance: METAMIZOLE
     Indication: Pain
     Dosage: 1 G (1 GRAM, QID, 1X4 G)
     Route: 042
  14. NALOXONE HYDROCHLORIDE\OXYCODONE HYDROCHLORIDE [Suspect]
     Active Substance: NALOXONE HYDROCHLORIDE\OXYCODONE HYDROCHLORIDE
     Indication: Product used for unknown indication
     Route: 065
  15. OXYCODONE [Suspect]
     Active Substance: OXYCODONE
     Indication: Pain
     Dosage: 20 MG, BID
     Route: 048
  16. PRILOCAINE HYDROCHLORIDE [Suspect]
     Active Substance: PRILOCAINE HYDROCHLORIDE
     Indication: Infiltration anaesthesia
     Dosage: UNK (ON JANUARY 15 AND 17)
     Route: 008
  17. TORSEMIDE [Suspect]
     Active Substance: TORSEMIDE
     Dosage: 5 MILLIGRAM, QD, 1X5 MG
     Route: 065
  18. TORSEMIDE [Suspect]
     Active Substance: TORSEMIDE
     Indication: Product used for unknown indication
     Dosage: 5 MG (5 MILLIGRAM, QD, 1X5 MG)
     Route: 065
  19. TRIAMCINOLONE [Suspect]
     Active Substance: TRIAMCINOLONE
     Indication: Infiltration anaesthesia
     Dosage: 40 MG (JANUARY 15 AND 17, INJECTION)
     Route: 050
  20. TRIAMCINOLONE [Suspect]
     Active Substance: TRIAMCINOLONE
     Dosage: 40 MG (JANUARY 21, INJECTION)
     Route: 037
  21. VALPROATE [Suspect]
     Active Substance: VALPROIC ACID
     Indication: Product used for unknown indication
     Dosage: 300 MG (300 MILLIGRAM, BID, 2X300 MG)
     Route: 065

REACTIONS (1)
  - Necrotising fasciitis [Recovering/Resolving]

NARRATIVE: CASE EVENT DATE: 20191004
